FAERS Safety Report 5990255-4 (Version None)
Quarter: 2008Q4

REPORT INFORMATION
  Report Type: 
  Country: None (occurrence: None)
  Receive Date: 20081211
  Receipt Date: 20080418
  Transmission Date: 20090506
  Serious: No
  Sender: FDA-Public Use
  Company Number: US-AMGEN-KDL272326

PATIENT
  Sex: Female

DRUGS (2)
  1. ENBREL [Suspect]
     Indication: RHEUMATOID ARTHRITIS
     Route: 058
     Dates: start: 20030101, end: 20080314
  2. METHOTREXATE [Suspect]
     Route: 048

REACTIONS (5)
  - CHILLS [None]
  - HEPATIC ENZYME INCREASED [None]
  - NAUSEA [None]
  - PYREXIA [None]
  - RHEUMATOID ARTHRITIS [None]
